FAERS Safety Report 5179370-5 (Version None)
Quarter: 2006Q4

REPORT INFORMATION
  Report Type: 
  Country: None (occurrence: None)
  Receive Date: 20061219
  Receipt Date: 19980417
  Transmission Date: 20070319
  Serious: Yes (Death)
  Sender: FDA-Public Use
  Company Number: GB-ROCHE-98097

PATIENT
  Age: 37 Year
  Sex: Male

DRUGS (1)
  1. LARIAM [Suspect]
     Indication: MALARIA PROPHYLAXIS
     Route: 048
     Dates: start: 19970915, end: 19971030

REACTIONS (9)
  - ABNORMAL BEHAVIOUR [None]
  - AORTIC RUPTURE [None]
  - COMPLETED SUICIDE [None]
  - DEPRESSION [None]
  - FACIAL BONES FRACTURE [None]
  - FALL [None]
  - FEMUR FRACTURE [None]
  - POLYTRAUMATISM [None]
  - SKULL FRACTURE [None]
